FAERS Safety Report 5886713-3 (Version None)
Quarter: 2008Q3

REPORT INFORMATION
  Report Type: 
  Country: None (occurrence: None)
  Receive Date: 20080917
  Receipt Date: 20080911
  Transmission Date: 20090109
  Serious: Yes (Other)
  Sender: FDA-Public Use
  Company Number: PHHY2008DE18647

PATIENT
  Sex: Female
  Weight: 53 kg

DRUGS (1)
  1. ESTRADERM [Suspect]
     Indication: HORMONE REPLACEMENT THERAPY
     Dosage: 50 UG, UNK
     Route: 062
     Dates: start: 20040101, end: 20080830

REACTIONS (5)
  - APPLICATION SITE REACTION [None]
  - DERMATITIS CONTACT [None]
  - ECZEMA [None]
  - PRURITUS [None]
  - RASH [None]
